FAERS Safety Report 4970740-4 (Version None)
Quarter: 2006Q2

REPORT INFORMATION
  Report Type: 
  Country: None (occurrence: None)
  Receive Date: 20060411
  Receipt Date: 20060411
  Transmission Date: 20061013
  Serious: Yes (Hospitalization)
  Sender: FDA-Public Use
  Company Number: None

PATIENT
  Age: 56 Year
  Sex: Male

DRUGS (2)
  1. BACTRIM DS [Suspect]
     Indication: PROPHYLAXIS
     Dosage: BID, BID, ORAL
     Route: 048
     Dates: start: 20060214, end: 20060216
  2. BACTRIM DS [Suspect]
     Indication: URINARY TRACT INFECTION
     Dosage: BID, BID, ORAL
     Route: 048
     Dates: start: 20060214, end: 20060216

REACTIONS (1)
  - RASH [None]
